FAERS Safety Report 14292876 (Version 1)
Quarter: 2017Q4

REPORT INFORMATION
  Report Type: Spontaneous
  Country: US (occurrence: US)
  Receive Date: 20171215
  Receipt Date: 20171215
  Transmission Date: 20180321
  Serious: No
  Sender: FDA-Public Use
  Company Number: US-BAYER-2017-238197

PATIENT
  Age: 67 Year
  Sex: Female

DRUGS (8)
  1. ESTRADIOL. [Suspect]
     Active Substance: ESTRADIOL
     Dosage: 0.05 MG
     Route: 062
     Dates: start: 2016
  2. VALSARTAN. [Concomitant]
     Active Substance: VALSARTAN
     Indication: HYPERTENSION
     Dosage: 160 MG
     Dates: start: 201711
  3. MELOXICAM. [Suspect]
     Active Substance: MELOXICAM
     Dosage: 15 MG
     Dates: start: 201705
  4. XANAX [Suspect]
     Active Substance: ALPRAZOLAM
     Dosage: 0.25 MG
     Route: 048
     Dates: start: 201612
  5. FLEXERIL [Concomitant]
     Active Substance: CYCLOBENZAPRINE HYDROCHLORIDE
     Indication: MUSCLE SPASMS
     Dosage: 10MG AT BEDTIME WHEN NEEDED
     Route: 048
     Dates: start: 2015
  6. BUPROPION. [Concomitant]
     Active Substance: BUPROPION
     Indication: DEPRESSION
     Dosage: 150MG 3 TIMES A DAY
     Dates: start: 2015
  7. METOPROLOL. [Suspect]
     Active Substance: METOPROLOL
     Indication: HYPERTENSION
     Dosage: 50 MG, QD
     Dates: start: 201710, end: 201711
  8. BYSTOLIC [Concomitant]
     Active Substance: NEBIVOLOL HYDROCHLORIDE
     Indication: HYPERTENSION
     Dosage: UNK
     Dates: start: 201711

REACTIONS (3)
  - Alopecia [None]
  - Blood pressure increased [Not Recovered/Not Resolved]
  - Insomnia [Recovered/Resolved]

NARRATIVE: CASE EVENT DATE: 201710
